FAERS Safety Report 10743537 (Version 4)
Quarter: 2015Q3

REPORT INFORMATION
  Report Type: Report from Study
  Country: US (occurrence: US)
  Receive Date: 20150128
  Receipt Date: 20150925
  Transmission Date: 20151125
  Serious: Yes (Hospitalization)
  Sender: FDA-Public Use
  Company Number: US-ACTELION-A-US2014-110592

PATIENT
  Age: 81 Year
  Sex: Female
  Weight: 106.58 kg

DRUGS (37)
  1. LASIX [Concomitant]
     Active Substance: FUROSEMIDE
     Dosage: 40 UNK, UNK
     Route: 042
  2. DESYREL [Concomitant]
     Active Substance: TRAZODONE HYDROCHLORIDE
     Dosage: 25 MG, QPM
     Route: 048
  3. IPRATROPIUM [Concomitant]
     Active Substance: IPRATROPIUM
     Dosage: 0.5 MG, Q4HRS
  4. ASPIRIN. [Concomitant]
     Active Substance: ASPIRIN
     Dosage: 325 UNK, UNK
     Route: 048
  5. LIDEX [Concomitant]
     Active Substance: FLUOCINONIDE
     Dosage: 0.05%, APPLY TOPICALLY, BID
     Route: 061
  6. NEURONTIN [Concomitant]
     Active Substance: GABAPENTIN
     Dosage: 300 MG, BID
  7. MULTIVITAMIN [Concomitant]
     Active Substance: VITAMINS
     Dosage: 1 TABLET, QD
     Route: 048
  8. PRILOSEC [Concomitant]
     Active Substance: OMEPRAZOLE MAGNESIUM
     Dosage: 20 MG, QD
     Route: 048
  9. SYNTHROID [Concomitant]
     Active Substance: LEVOTHYROXINE SODIUM
     Dosage: 137 MCG, QD
     Route: 048
  10. DESYREL [Concomitant]
     Active Substance: TRAZODONE HYDROCHLORIDE
     Dosage: 50 MG, QPM
     Route: 048
  11. MACITENTAN [Suspect]
     Active Substance: MACITENTAN
     Indication: PULMONARY ARTERIAL HYPERTENSION
     Dosage: 10 MG, QD
     Route: 048
     Dates: start: 201411, end: 201508
  12. NEURONTIN [Concomitant]
     Active Substance: GABAPENTIN
     Dosage: 600 MG, TID
     Route: 048
  13. MELATONIN [Concomitant]
     Active Substance: MELATONIN
     Dosage: 3 MG, AT BEDTIME, PRN
     Route: 048
  14. LOPRESSOR [Concomitant]
     Active Substance: METOPROLOL TARTRATE
     Dosage: 50 MG, BID
     Route: 048
  15. VESICARE [Concomitant]
     Active Substance: SOLIFENACIN SUCCINATE
     Dosage: 10 MG, PRN
     Route: 048
  16. LISINOPRIL. [Concomitant]
     Active Substance: LISINOPRIL
     Dosage: 2.5 MG, QD
  17. INSULIN ASPART [Concomitant]
     Active Substance: INSULIN ASPART
     Dosage: 10 U, UNK
     Route: 058
  18. METHYLPREDNISOLONE. [Concomitant]
     Active Substance: METHYLPREDNISOLONE
     Dosage: 60 MG, Q6HRS
     Route: 042
  19. SODIUM CHLORIDE. [Concomitant]
     Active Substance: SODIUM CHLORIDE
     Dosage: 10 ML, Q12HRS
     Route: 042
  20. BENZONATATE. [Concomitant]
     Active Substance: BENZONATATE
  21. ASPIRIN. [Concomitant]
     Active Substance: ASPIRIN
     Dosage: 81 MG, BID
     Route: 048
  22. NITROGLYCERINE [Concomitant]
     Active Substance: NITROGLYCERIN
     Indication: CHEST PAIN
     Dosage: 0.4 MG, Q5MIN/PRN
  23. BRILINTA [Concomitant]
     Active Substance: TICAGRELOR
     Dosage: 90 MG, BID
  24. OXYGEN. [Concomitant]
     Active Substance: OXYGEN
     Route: 045
  25. LASIX [Concomitant]
     Active Substance: FUROSEMIDE
     Dosage: 20 MG, QD
     Route: 048
  26. AMBIEN [Concomitant]
     Active Substance: ZOLPIDEM TARTRATE
     Dosage: 10 MG, QPM, PRN
     Route: 048
  27. TYVASO [Suspect]
     Active Substance: TREPROSTINIL
     Indication: PULMONARY ARTERIAL HYPERTENSION
     Dosage: 18 TO 54 MCG, (3-9 BREATHS) QID
     Route: 055
     Dates: start: 20141110, end: 201508
  28. NITROGLYCERIN. [Concomitant]
     Active Substance: NITROGLYCERIN
     Dosage: 0.4 MG, PRN
     Route: 060
  29. FENTANYL DURA [Concomitant]
     Dosage: UNK, EVERY OTHER 3 DAY
  30. ENOXAPARIN [Concomitant]
     Active Substance: ENOXAPARIN
     Dosage: 1 MG/KG, Q12HRS
     Route: 058
  31. FOSAMAX [Concomitant]
     Active Substance: ALENDRONATE SODIUM
     Dosage: 70 MG, Q1WEEK
     Route: 048
  32. PROZAC [Concomitant]
     Active Substance: FLUOXETINE HYDROCHLORIDE
     Dosage: 10 MG, QD
     Route: 048
  33. COREG [Concomitant]
     Active Substance: CARVEDILOL
     Dosage: 6.25 MG, BID
  34. PANTOPRAZOLE SODIUM. [Concomitant]
     Active Substance: PANTOPRAZOLE SODIUM
     Dosage: 40 MG, QD
  35. ACETAMINOPHEN. [Concomitant]
     Active Substance: ACETAMINOPHEN
  36. ONDANSETRON [Concomitant]
     Active Substance: ONDANSETRON
     Dosage: UNK, PRN
  37. PRAVACHOL [Concomitant]
     Active Substance: PRAVASTATIN SODIUM
     Dosage: 40 MG, QPM
     Route: 048

REACTIONS (29)
  - Acute respiratory failure [Unknown]
  - Chronic obstructive pulmonary disease [Recovered/Resolved]
  - Dyspnoea [Recovered/Resolved]
  - Wheezing [Recovered/Resolved]
  - Leukocytosis [Recovered/Resolved]
  - Coronary artery stenosis [Recovered/Resolved]
  - Pulmonary oedema [Unknown]
  - Chest pain [Unknown]
  - Acute pulmonary oedema [Recovered/Resolved]
  - Blood glucose increased [Unknown]
  - Pulmonary hypertension [Unknown]
  - Disease complication [Unknown]
  - Hypoxia [Unknown]
  - Hypertensive emergency [Unknown]
  - Headache [Unknown]
  - Fatigue [Unknown]
  - Troponin increased [Recovered/Resolved]
  - Oedema peripheral [Unknown]
  - Bronchitis [Unknown]
  - Rales [Recovered/Resolved]
  - Coronary arterial stent insertion [Unknown]
  - Dyspnoea [Unknown]
  - Tremor [Unknown]
  - Cardiac failure congestive [Recovered/Resolved]
  - Cardiomyopathy [Recovered/Resolved]
  - Back pain [Unknown]
  - Acute myocardial infarction [Recovered/Resolved]
  - Diastolic dysfunction [Unknown]
  - Erythema [Unknown]

NARRATIVE: CASE EVENT DATE: 20141128
